FAERS Safety Report 13432558 (Version 1)
Quarter: 2017Q2

REPORT INFORMATION
  Report Type: Spontaneous
  Country: US (occurrence: US)
  Receive Date: 20170412
  Receipt Date: 20170412
  Transmission Date: 20170830
  Serious: Yes (Other)
  Sender: FDA-Public Use
  Company Number: US-ELI_LILLY_AND_COMPANY-US201704002503

PATIENT
  Sex: Female

DRUGS (1)
  1. FORTEO [Suspect]
     Active Substance: TERIPARATIDE
     Indication: PRODUCT USED FOR UNKNOWN INDICATION
     Dosage: UNK, UNKNOWN
     Route: 065
     Dates: start: 201702

REACTIONS (11)
  - Fall [Unknown]
  - Musculoskeletal chest pain [Unknown]
  - Alopecia [Unknown]
  - Dizziness [Unknown]
  - Syncope [Unknown]
  - Dry eye [Unknown]
  - Chest injury [Unknown]
  - Dry skin [Unknown]
  - Joint injury [Unknown]
  - Insomnia [Unknown]
  - Diarrhoea [Unknown]

NARRATIVE: CASE EVENT DATE: 20170402
